FAERS Safety Report 6191707-7 (Version None)
Quarter: 2009Q2

REPORT INFORMATION
  Report Type: 
  Country: None (occurrence: None)
  Receive Date: 20090513
  Receipt Date: 20090506
  Transmission Date: 20091009
  Serious: Yes (Death)
  Sender: FDA-Public Use
  Company Number: TPA2009A00917

PATIENT
  Age: 43 Year
  Sex: Male
  Weight: 116.1208 kg

DRUGS (6)
  1. KAPIDEX [Suspect]
     Indication: GASTROOESOPHAGEAL REFLUX DISEASE
     Dosage: 60 MG, 2 IN 1 D, PER ORAL; 60 MG, 1 IN 1 D, PER ORAL
     Route: 048
     Dates: start: 20090401, end: 20090419
  2. KAPIDEX [Suspect]
     Indication: GASTROOESOPHAGEAL REFLUX DISEASE
     Dosage: 60 MG, 2 IN 1 D, PER ORAL; 60 MG, 1 IN 1 D, PER ORAL
     Route: 048
     Dates: start: 20090420, end: 20090427
  3. TEKTURNA (ANTIHYPERTENSIVES) [Concomitant]
  4. AZOR (ALPRAZOLAM) [Concomitant]
  5. BUSPAR [Concomitant]
  6. ZOLOFT [Concomitant]

REACTIONS (3)
  - FALL [None]
  - INCORRECT DOSE ADMINISTERED [None]
  - SUDDEN DEATH [None]
